FAERS Safety Report 7473894-3 (Version None)
Quarter: 2011Q2

REPORT INFORMATION
  Report Type: 
  Country: None (occurrence: None)
  Receive Date: 20110511
  Receipt Date: 20110427
  Transmission Date: 20111010
  Serious: No
  Sender: FDA-Public Use
  Company Number: US-B.I. PHARMACEUTICALS,INC./RIDGEFIELD-2011-BP-12257BP

PATIENT
  Sex: Male

DRUGS (6)
  1. MELPHALAN HYDROCHLORIDE [Concomitant]
     Indication: DYSPNOEA
  2. SPIRIVA [Suspect]
     Indication: DYSPNOEA
     Dosage: 18 MCG
     Route: 055
     Dates: start: 20090101
  3. ALBUTEROL [Concomitant]
     Indication: DYSPNOEA
  4. VICODIN [Concomitant]
     Indication: BACK PAIN
  5. PAROXETINE HCL [Concomitant]
     Indication: ANGER
  6. NIFEDIPINE [Concomitant]
     Indication: OESOPHAGEAL STENOSIS

REACTIONS (1)
  - DYSPNOEA [None]
